FAERS Safety Report 4471440-X (Version None)
Quarter: 2004Q4

REPORT INFORMATION
  Report Type: 
  Country: None (occurrence: None)
  Receive Date: 20041007
  Receipt Date: 20041004
  Transmission Date: 20050328
  Serious: Yes (Other)
  Sender: FDA-Public Use
  Company Number: 002849

PATIENT
  Age: 66 Year
  Sex: Female

DRUGS (6)
  1. MEDROXYPROGESTERONE ACETATE [Suspect]
     Dates: start: 19880501, end: 19940801
  2. PREMARIN [Suspect]
     Dates: start: 19880501, end: 19940801
  3. PROVERA [Suspect]
     Dates: start: 19880501, end: 19940801
  4. MEDROXYPROGESTERONE ACETATE [Suspect]
     Dates: start: 19960901, end: 19990601
  5. ESTRATAB [Suspect]
     Dates: start: 19990601, end: 20020701
  6. PROMETRIUM [Suspect]
     Dates: start: 19990601, end: 20020701

REACTIONS (1)
  - BREAST CANCER FEMALE [None]
